FAERS Safety Report 16979365 (Version 1)
Quarter: 2019Q4

REPORT INFORMATION
  Report Type: Spontaneous
  Country: GR (occurrence: GR)
  Receive Date: 20191031
  Receipt Date: 20191031
  Transmission Date: 20200122
  Serious: Yes (Life-Threatening, Hospitalization, Disabling)
  Sender: FDA-Public Use
  Company Number: GR-JNJFOC-20191035816

PATIENT
  Age: 65 Year
  Sex: Female
  Weight: 50 kg

DRUGS (3)
  1. STELARA [Suspect]
     Active Substance: USTEKINUMAB
     Indication: PRODUCT USED FOR UNKNOWN INDICATION
     Route: 058
     Dates: start: 201803
  2. FOSAVANCE [Concomitant]
     Active Substance: ALENDRONATE SODIUM\CHOLECALCIFEROL
     Indication: PRODUCT USED FOR UNKNOWN INDICATION
     Dosage: THE PATIENT RECEIVES FOSAVANCE FOR YEARS.
     Route: 065
  3. MEDROL [Concomitant]
     Active Substance: METHYLPREDNISOLONE
     Indication: PRODUCT USED FOR UNKNOWN INDICATION
     Dosage: THE PATIENT RECEIVES MEDROL FOR YEARS
     Route: 065

REACTIONS (8)
  - Pyrexia [Unknown]
  - Dyspnoea [Unknown]
  - Central nervous system infection [Not Recovered/Not Resolved]
  - Hypoaesthesia [Unknown]
  - Dysphagia [Unknown]
  - Pain [Unknown]
  - Myelitis transverse [Not Recovered/Not Resolved]
  - Paralysis [Unknown]

NARRATIVE: CASE EVENT DATE: 201906
